FAERS Safety Report 8424253-8 (Version None)
Quarter: 2012Q2

REPORT INFORMATION
  Report Type: 
  Country: None (occurrence: None)
  Receive Date: 20120608
  Receipt Date: 20120120
  Transmission Date: 20120825
  Serious: No
  Sender: FDA-Public Use
  Company Number: US-ASTRAZENECA-2012SE01915

PATIENT
  Sex: Female

DRUGS (1)
  1. PULMICORT FLEXHALER [Suspect]
     Dosage: 180 MCG ONE PUFF TWICE DAILY
     Route: 055

REACTIONS (5)
  - RESTLESSNESS [None]
  - BACK PAIN [None]
  - DRUG INEFFECTIVE [None]
  - ASTHENIA [None]
  - PULMONARY OEDEMA [None]
